FAERS Safety Report 4502581-6 (Version None)
Quarter: 2004Q4

REPORT INFORMATION
  Report Type: 
  Country: None (occurrence: None)
  Receive Date: 20041110
  Receipt Date: 20041101
  Transmission Date: 20050328
  Serious: Yes (Hospitalization)
  Sender: FDA-Public Use
  Company Number: TOR 2004-0030

PATIENT
  Age: 61 Year
  Sex: Female

DRUGS (3)
  1. FARESTON [Suspect]
     Indication: BREAST CANCER
     Dosage: 120 MG ORAL
     Route: 048
     Dates: start: 20040802, end: 20040916
  2. DOXIFLURIDINE [Suspect]
     Indication: BREAST CANCER
     Dosage: 800 MG ORAL
     Route: 048
     Dates: start: 20040802, end: 20040910
  3. DOCETAXEL HYDRATE [Suspect]
     Indication: BREAST CANCER
     Dosage: 90 MG INTRAVENOUS
     Route: 042
     Dates: start: 20040802, end: 20040823

REACTIONS (3)
  - HEPATITIS [None]
  - HEPATOCELLULAR DAMAGE [None]
  - PYREXIA [None]
